FAERS Safety Report 17938500 (Version 8)
Quarter: 2020Q4

REPORT INFORMATION
  Report Type: Spontaneous
  Country: JP (occurrence: JP)
  Receive Date: 20200624
  Receipt Date: 20201228
  Transmission Date: 20210113
  Serious: Yes (Other)
  Sender: FDA-Public Use
  Company Number: JP-JNJFOC-20180911034

PATIENT
  Sex: Female

DRUGS (6)
  1. RISPERDAL [Suspect]
     Active Substance: RISPERIDONE
     Route: 048
  2. RISPERDAL [Suspect]
     Active Substance: RISPERIDONE
     Route: 048
  3. RISPERDAL [Suspect]
     Active Substance: RISPERIDONE
     Route: 048
  4. RISPERDAL [Suspect]
     Active Substance: RISPERIDONE
     Dosage: DOSE UNKNOWN
     Route: 048
  5. RISPERDAL [Suspect]
     Active Substance: RISPERIDONE
     Indication: PRODUCT USED FOR UNKNOWN INDICATION
     Route: 048
     Dates: start: 2017
  6. RISPERDAL [Suspect]
     Active Substance: RISPERIDONE
     Route: 048

REACTIONS (25)
  - Hepatic steatosis [Unknown]
  - Blood luteinising hormone increased [Unknown]
  - Amenorrhoea [Unknown]
  - Visual acuity reduced [Unknown]
  - Drug ineffective [Unknown]
  - Withdrawal syndrome [Unknown]
  - Salivary hypersecretion [Unknown]
  - Bedridden [Unknown]
  - Treatment noncompliance [Unknown]
  - Blood glucose increased [Unknown]
  - Bruxism [Unknown]
  - Tinnitus [Unknown]
  - Eye discharge [Unknown]
  - Hyperprolactinaemia [Not Recovered/Not Resolved]
  - Hypercholesterolaemia [Unknown]
  - Muscle spasms [Not Recovered/Not Resolved]
  - Seborrhoea [Not Recovered/Not Resolved]
  - Acne [Not Recovered/Not Resolved]
  - Breast enlargement [Unknown]
  - Polydipsia [Unknown]
  - Pruritus [Unknown]
  - Weight increased [Unknown]
  - Hallucination, auditory [Unknown]
  - Liver function test increased [Unknown]
  - Blood follicle stimulating hormone increased [Unknown]

NARRATIVE: CASE EVENT DATE: 2020
